FAERS Safety Report 15760046 (Version 1)
Quarter: 2018Q4

REPORT INFORMATION
  Report Type: Report from Study
  Country: US (occurrence: US)
  Receive Date: 20181226
  Receipt Date: 20181226
  Transmission Date: 20190205
  Serious: Yes (Death, Other)
  Sender: FDA-Public Use
  Company Number: PHHY2018US188741

PATIENT
  Age: 18 Year
  Sex: Male
  Weight: 82.3 kg

DRUGS (1)
  1. KYMRIAH [Suspect]
     Active Substance: TISAGENLECLEUCEL
     Indication: DIFFUSE LARGE B-CELL LYMPHOMA
     Dosage: 30 ML, UNK
     Route: 042
     Dates: start: 20181011

REACTIONS (27)
  - Jaundice cholestatic [Unknown]
  - Renal impairment [Unknown]
  - Fatigue [Not Recovered/Not Resolved]
  - Hepatic function abnormal [Unknown]
  - Inflammatory marker increased [Unknown]
  - Blood uric acid increased [Unknown]
  - Hypofibrinogenaemia [Unknown]
  - Febrile neutropenia [Not Recovered/Not Resolved]
  - Hypoxia [Unknown]
  - Infection [Unknown]
  - Polyuria [Unknown]
  - Coagulopathy [Unknown]
  - Cholestasis [Unknown]
  - Cough [Not Recovered/Not Resolved]
  - Haemophagocytic lymphohistiocytosis [Fatal]
  - Blood bilirubin increased [Unknown]
  - Pallor [Not Recovered/Not Resolved]
  - Malignant neoplasm progression [Unknown]
  - Pancytopenia [Unknown]
  - Thrombocytopenia [Unknown]
  - Splenomegaly [Unknown]
  - Hypercalcaemia [Recovering/Resolving]
  - Multiple organ dysfunction syndrome [Fatal]
  - Diffuse large B-cell lymphoma recurrent [Unknown]
  - Cytokine release syndrome [Unknown]
  - Fluid overload [Unknown]
  - Abdominal tenderness [Unknown]

NARRATIVE: CASE EVENT DATE: 20181121
